FAERS Safety Report 9162098 (Version 1)
Quarter: 2013Q1

REPORT INFORMATION
  Report Type: Spontaneous
  Country: PH (occurrence: PH)
  Receive Date: 20130314
  Receipt Date: 20130314
  Transmission Date: 20140127
  Serious: Yes (Death, Other)
  Sender: FDA-Public Use
  Company Number: PH-009507513-1303PHL004460

PATIENT
  Age: 71 Year
  Sex: Male

DRUGS (1)
  1. COZAAR [Suspect]
     Dosage: 1 DF, QD
     Dates: start: 201207

REACTIONS (3)
  - Myocardial infarction [Fatal]
  - Cardiac arrest [Fatal]
  - Cerebrovascular accident [Unknown]
